FAERS Safety Report 9339477 (Version 2)
Quarter: 2013Q2

REPORT INFORMATION
  Report Type: Spontaneous
  Country: US (occurrence: US)
  Receive Date: 20130610
  Receipt Date: 20130627
  Transmission Date: 20140414
  Serious: Yes (Death)
  Sender: FDA-Public Use
  Company Number: US-GILEAD-2013-0076680

PATIENT
  Sex: Female

DRUGS (2)
  1. LETAIRIS [Suspect]
     Indication: PULMONARY ARTERIAL HYPERTENSION
     Route: 048
     Dates: start: 20130128
  2. LETAIRIS [Suspect]
     Indication: SCLERODERMA

REACTIONS (3)
  - Multi-organ failure [Fatal]
  - Renal failure [Fatal]
  - Respiratory failure [Fatal]
